FAERS Safety Report 8170359-0 (Version None)
Quarter: 2012Q1

REPORT INFORMATION
  Report Type: 
  Country: None (occurrence: None)
  Receive Date: 20120228
  Receipt Date: 20120220
  Transmission Date: 20120608
  Serious: Yes (Hospitalization, Other)
  Sender: FDA-Public Use
  Company Number: KR-ROXANE LABORATORIES, INC.-2012-RO-00678RO

PATIENT
  Age: 46 Year
  Sex: Male

DRUGS (2)
  1. AZELASTINE HCL [Suspect]
     Indication: NASOPHARYNGITIS
  2. NAPROXEN [Suspect]
     Indication: NASOPHARYNGITIS

REACTIONS (2)
  - OESOPHAGEAL DISORDER [None]
  - OESOPHAGEAL ULCER [None]
